FAERS Safety Report 6175857-7 (Version None)
Quarter: 2009Q2

REPORT INFORMATION
  Report Type: 
  Country: None (occurrence: None)
  Receive Date: 20090501
  Receipt Date: 20090420
  Transmission Date: 20091009
  Serious: Yes (Hospitalization, Other)
  Sender: FDA-Public Use
  Company Number: DE-ELI_LILLY_AND_COMPANY-DE200901002868

PATIENT
  Sex: Female
  Weight: 60 kg

DRUGS (7)
  1. CYMBALTA [Suspect]
     Dosage: 14 TABLETS OF 30 MG AT ONCE
     Route: 048
  2. MICARDIS [Concomitant]
     Dosage: 7 TABLETS OF 40 MG AT ONCE
     Route: 048
  3. THOMAPYRIN [Concomitant]
     Dosage: 5 TABLETS AT ONCE
     Route: 048
  4. ASPIRIN [Concomitant]
     Dosage: UNK, UNKNOWN
     Route: 065
  5. BETA BLOCKING AGENTS [Concomitant]
     Dosage: UNK, UNKNOWN
     Route: 065
  6. L-THYROX [Concomitant]
     Dosage: 15 TABLETS AT ONCE
     Route: 065
  7. METOCLOPRAMIDE [Concomitant]
     Dosage: 4 TABLETS AT ONCE
     Route: 065

REACTIONS (4)
  - INTENTIONAL OVERDOSE [None]
  - SOPOR [None]
  - SUICIDE ATTEMPT [None]
  - TACHYCARDIA [None]
